FAERS Safety Report 8347591 (Version 3)
Quarter: 2012Q4

REPORT INFORMATION
  Report Type: 
  Country: US (occurrence: US)
  Receive Date: 20120120
  Receipt Date: 20121012
  Transmission Date: 20130627
  Serious: Yes (Other)
  Sender: FDA-Public Use
  Company Number: US-ASTRAZENECA-2011SE05114

PATIENT
  Age: 71 Month
  Sex: Female

DRUGS (3)
  1. ARIMIDEX [Suspect]
     Indication: BREAST CANCER
     Route: 048
     Dates: start: 2009
  2. NEXIUM [Suspect]
     Route: 048
  3. ANASTROZOLE [Suspect]
     Route: 048

REACTIONS (5)
  - Renal cancer [Unknown]
  - Metastases to kidney [Unknown]
  - Pain in extremity [Unknown]
  - Paraesthesia [Unknown]
  - Hypokinesia [Unknown]
